FAERS Safety Report 4511342-3 (Version None)
Quarter: 2004Q4

REPORT INFORMATION
  Report Type: 
  Country: None (occurrence: None)
  Receive Date: 20041123
  Receipt Date: 20041123
  Transmission Date: 20050328
  Serious: Yes (Hospitalization, Disabling, Other)
  Sender: FDA-Public Use
  Company Number: None

PATIENT
  Age: 57 Year
  Sex: Female
  Weight: 53.978 kg

DRUGS (2)
  1. CORICIDIN D (CHLORPHENIRAMINE/PHENYLPROPANOLAMINE/AS TABLETS [Suspect]
     Indication: COUGH
     Dosage: 10 TABS ORAL
     Route: 048
     Dates: start: 19990214, end: 19990215
  2. ROBITUSSIN [Concomitant]

REACTIONS (11)
  - AMNESIA [None]
  - CEREBELLAR HAEMORRHAGE [None]
  - COORDINATION ABNORMAL [None]
  - DEEP VEIN THROMBOSIS [None]
  - DIZZINESS [None]
  - HEADACHE [None]
  - HEMIPARESIS [None]
  - PAIN IN EXTREMITY [None]
  - TRANSIENT ISCHAEMIC ATTACK [None]
  - VISION BLURRED [None]
  - VOMITING [None]
